FAERS Safety Report 5279685-6 (Version None)
Quarter: 2007Q1

REPORT INFORMATION
  Report Type: 
  Country: None (occurrence: None)
  Receive Date: 20070323
  Receipt Date: 20070309
  Transmission Date: 20070707
  Serious: Yes (Other)
  Sender: FDA-Public Use
  Company Number: T200700302

PATIENT
  Age: 57 Year
  Sex: Male

DRUGS (2)
  1. PAMELOR [Suspect]
     Indication: DEPRESSION
     Dates: start: 20040301
  2. WELLBUTRIN [Suspect]
     Indication: DEPRESSION
     Dates: start: 20040301

REACTIONS (2)
  - BENIGN PROSTATIC HYPERPLASIA [None]
  - URINARY TRACT OBSTRUCTION [None]
